FAERS Safety Report 4683559-9 (Version None)
Quarter: 2005Q2

REPORT INFORMATION
  Report Type: 
  Country: None (occurrence: None)
  Receive Date: 20050602
  Receipt Date: 20050315
  Transmission Date: 20051028
  Serious: No
  Sender: FDA-Public Use
  Company Number: 200510496BWH

PATIENT
  Age: 65 Year
  Sex: Male

DRUGS (14)
  1. LEVITRA [Suspect]
     Indication: ERECTILE DYSFUNCTION
     Dosage: 10 MG, TOTAL DAILY, ORAL
     Route: 048
     Dates: start: 20050220
  2. LEVITRA [Suspect]
     Indication: ERECTILE DYSFUNCTION
     Dosage: 10 MG, TOTAL DAILY, ORAL
     Route: 048
     Dates: start: 20050314
  3. POTASSIUM CHLORIDE [Concomitant]
  4. PLAVIX [Concomitant]
  5. LIPITOR [Concomitant]
  6. NABUMETONE [Concomitant]
  7. METFORMIN HCL [Concomitant]
  8. ACTOS [Concomitant]
  9. ACCUPRIL [Concomitant]
  10. FUROSEMIDE [Concomitant]
  11. GLYBURIDE [Concomitant]
  12. LORAZEPAM [Concomitant]
  13. EPA NATURAL FISH OIL [Concomitant]
  14. VIAGRA [Concomitant]

REACTIONS (1)
  - ERECTILE DYSFUNCTION [None]
